FAERS Safety Report 20790682 (Version 1)
Quarter: 2022Q2

REPORT INFORMATION
  Report Type: Spontaneous
  Country: US (occurrence: None)
  Receive Date: 20220505
  Receipt Date: 20220505
  Transmission Date: 20220721
  Serious: Yes (unspecified)
  Sender: FDA-Public Use
  Company Number: None

PATIENT
  Age: 62 Year
  Sex: Male
  Weight: 97.1 kg

DRUGS (1)
  1. YESCARTA [Suspect]
     Active Substance: AXICABTAGENE CILOLEUCEL
     Indication: Diffuse large B-cell lymphoma recurrent
     Dosage: FREQUENCY : ONCE;?
     Route: 041
     Dates: start: 20220427, end: 20220427

REACTIONS (2)
  - Cytokine release syndrome [None]
  - Hypoxia [None]

NARRATIVE: CASE EVENT DATE: 20220503
